FAERS Safety Report 19488524 (Version 5)
Quarter: 2022Q2

REPORT INFORMATION
  Report Type: Report from Study
  Country: FR (occurrence: None)
  Receive Date: 20210702
  Receipt Date: 20220406
  Transmission Date: 20220720
  Serious: Yes (Death, Hospitalization)
  Sender: FDA-Public Use
  Company Number: FR-ROCHE-2856035

PATIENT
  Age: 81 Year
  Sex: Male
  Weight: 63 kg

DRUGS (2)
  1. ATEZOLIZUMAB [Suspect]
     Active Substance: ATEZOLIZUMAB
     Indication: Gastric cancer recurrent
     Dosage: DATE OF LAST DOSE: 10/JUN/2021 AND 12/AUG/2021
     Route: 042
     Dates: start: 20210520, end: 20210610
  2. BEVACIZUMAB [Suspect]
     Active Substance: BEVACIZUMAB
     Indication: Gastric cancer recurrent
     Dosage: DATE OF LAST DOSE: 10/JUN/2021 AND 12/AUG/2021
     Route: 042
     Dates: start: 20210520, end: 20210610

REACTIONS (2)
  - General physical health deterioration [Fatal]
  - Urinary tract infection [Recovered/Resolved]

NARRATIVE: CASE EVENT DATE: 20210614
